FAERS Safety Report 5420221-9 (Version None)
Quarter: 2007Q3

REPORT INFORMATION
  Report Type: 
  Country: None (occurrence: None)
  Receive Date: 20070815
  Receipt Date: 20070807
  Transmission Date: 20080115
  Serious: Yes (Other)
  Sender: FDA-Public Use
  Company Number: 12373

PATIENT
  Age: 17 Year
  Sex: Male
  Weight: 60 kg

DRUGS (8)
  1. METHOTREXATE [Suspect]
     Indication: NON-HODGKIN'S LYMPHOMA
     Dosage: 12.5 MG IT
     Route: 037
     Dates: start: 20050201
  2. METHOTREXATE [Suspect]
     Indication: NON-HODGKIN'S LYMPHOMA
     Dosage: 12.5 MG FREQ IT
     Route: 037
     Dates: start: 20050201
  3. METHOTREXATE [Suspect]
     Indication: NON-HODGKIN'S LYMPHOMA
     Dosage: 12.5 MG FREQ IT
     Route: 037
  4. CYTARABINE [Suspect]
     Indication: NON-HODGKIN'S LYMPHOMA
     Dosage: 40 MG IT
     Route: 037
     Dates: start: 20050201
  5. DEXAMETHASONE. MFR: ZYDUS CADILA [Concomitant]
  6. IFOSPHAMIDE. MFR: BAXTER [Concomitant]
  7. CARBOPLATIN [Concomitant]
  8. ETOPOSIDE. MFR: DABUR [Concomitant]

REACTIONS (3)
  - HYPERTENSION [None]
  - MYELOPATHY [None]
  - TACHYCARDIA [None]
